FAERS Safety Report 12983604 (Version 1)
Quarter: 2016Q4

REPORT INFORMATION
  Report Type: Spontaneous
  Country: KR (occurrence: KR)
  Receive Date: 20161129
  Receipt Date: 20161129
  Transmission Date: 20170207
  Serious: Yes (Other)
  Sender: FDA-Public Use
  Company Number: KR-CELGENEUS-KOR-2016114880

PATIENT
  Sex: Female

DRUGS (11)
  1. ABRAXANE [Suspect]
     Active Substance: PACLITAXEL
     Dosage: 144MG
     Route: 041
     Dates: start: 20161109
  2. GEMCITABINE [Concomitant]
     Active Substance: GEMCITABINE\GEMCITABINE HYDROCHLORIDE
     Dosage: 1168MG
     Route: 065
     Dates: start: 20161011
  3. GEMCITABINE [Concomitant]
     Active Substance: GEMCITABINE\GEMCITABINE HYDROCHLORIDE
     Dosage: 1168MG
     Route: 065
     Dates: start: 20161109
  4. DULOXETINE. [Concomitant]
     Active Substance: DULOXETINE
     Indication: PRODUCT USED FOR UNKNOWN INDICATION
     Route: 065
  5. ABRAXANE [Suspect]
     Active Substance: PACLITAXEL
     Dosage: 144MG
     Route: 041
     Dates: start: 20160622
  6. GEMCITABINE [Concomitant]
     Active Substance: GEMCITABINE\GEMCITABINE HYDROCHLORIDE
     Dosage: 1168MG
     Route: 065
     Dates: start: 20160622
  7. GABAPENTIN. [Concomitant]
     Active Substance: GABAPENTIN
     Indication: PRODUCT USED FOR UNKNOWN INDICATION
     Dosage: 200MG
     Route: 065
  8. ABRAXANE [Suspect]
     Active Substance: PACLITAXEL
     Indication: PANCREATIC CARCINOMA
     Dosage: 180MG
     Route: 041
     Dates: start: 20160520
  9. ABRAXANE [Suspect]
     Active Substance: PACLITAXEL
     Dosage: 144MG
     Route: 041
     Dates: start: 20161011
  10. GEMCITABINE [Concomitant]
     Active Substance: GEMCITABINE\GEMCITABINE HYDROCHLORIDE
     Indication: PANCREATIC CARCINOMA
     Dosage: 1460MG
     Route: 065
     Dates: start: 20160520
  11. GABAPENTIN. [Concomitant]
     Active Substance: GABAPENTIN
     Dosage: 400MG
     Route: 065

REACTIONS (3)
  - Gastrointestinal disorder [Unknown]
  - Neuropathy peripheral [Unknown]
  - Facial paralysis [Unknown]

NARRATIVE: CASE EVENT DATE: 201606
